FAERS Safety Report 5736885-6 (Version None)
Quarter: 2008Q2

REPORT INFORMATION
  Report Type: 
  Country: None (occurrence: None)
  Receive Date: 20080508
  Receipt Date: 20080424
  Transmission Date: 20081010
  Serious: Yes (Hospitalization)
  Sender: FDA-Public Use
  Company Number: 2007002288

PATIENT
  Age: 66 Year
  Sex: Female

DRUGS (5)
  1. ERLOTINIB (ERLOTINIB HCL) (TABLET) (ERLOTINIB HCL) [Suspect]
     Indication: OVARIAN CANCER
     Dosage: (150 MG, QD), ORAL
     Route: 048
     Dates: start: 20070619, end: 20071113
  2. ERLOTINIB (ERLOTINIB HCL) (TABLET) (ERLOTINIB HCL) [Suspect]
     Indication: OVARIAN CANCER
     Dosage: (150 MG, QD), ORAL
     Route: 048
     Dates: start: 20071126, end: 20071206
  3. XANAX [Concomitant]
  4. TRAZOLAN (TRAZODONE HYDROCHLORIDE) [Concomitant]
  5. OMEPRAZOLE [Concomitant]

REACTIONS (5)
  - CEREBRAL DISORDER [None]
  - DYSPHAGIA [None]
  - GASTRITIS [None]
  - METASTASES TO CENTRAL NERVOUS SYSTEM [None]
  - OVARIAN CANCER METASTATIC [None]
